FAERS Safety Report 16773489 (Version 1)
Quarter: 2019Q4

REPORT INFORMATION
  Report Type: Spontaneous
  Country: US (occurrence: US)
  Receive Date: 20190904
  Receipt Date: 20190904
  Transmission Date: 20200122
  Serious: Yes (Life-Threatening, Other)
  Sender: FDA-Public Use
  Company Number: None

PATIENT
  Age: 77 Year
  Sex: Female
  Weight: 83.25 kg

DRUGS (1)
  1. NYSTATIN SUS [Suspect]
     Active Substance: NYSTATIN
     Indication: CANDIDA INFECTION
     Route: 048

REACTIONS (5)
  - Oral discomfort [None]
  - Vomiting [None]
  - Cough [None]
  - Throat irritation [None]
  - Device dispensing error [None]

NARRATIVE: CASE EVENT DATE: 20190813
